FAERS Safety Report 9587962 (Version 2)
Quarter: 2013Q4

REPORT INFORMATION
  Report Type: Report from Study
  Country: DE (occurrence: DE)
  Receive Date: 20131003
  Receipt Date: 20131018
  Transmission Date: 20140711
  Serious: Yes (Hospitalization)
  Sender: FDA-Public Use
  Company Number: DE-ROCHE-1279671

PATIENT
  Age: 51 Year
  Sex: Male
  Weight: 92 kg

DRUGS (4)
  1. PERTUZUMAB [Suspect]
     Indication: BREAST CANCER
     Dosage: LAST DOSE PRIOR TO SAE WAS 11/SEP/2013
     Route: 042
     Dates: start: 20130710
  2. TRASTUZUMAB [Suspect]
     Indication: BREAST CANCER
     Dosage: LAST DOSE PRIOR TO SAE WAS 11/SEP/2013
     Route: 042
     Dates: start: 20130710
  3. NAB-PACLITAXEL [Suspect]
     Indication: BREAST CANCER
     Dosage: LAST DOSE PRIOR TO SAE WAS 11/SEP/2013
     Route: 042
     Dates: start: 20130710
  4. CEPHAZOLIN [Concomitant]
     Route: 065
     Dates: start: 20130913, end: 20130918

REACTIONS (2)
  - Abscess [Recovered/Resolved]
  - Cellulitis [Recovered/Resolved]
